FAERS Safety Report 10936677 (Version 1)
Quarter: 2015Q1

REPORT INFORMATION
  Report Type: Spontaneous
  Country: US (occurrence: None)
  Receive Date: 20150212
  Receipt Date: 20150212
  Transmission Date: 20150721
  Serious: No
  Sender: FDA-Public Use
  Company Number: TPA2011A00083

PATIENT
  Age: 65 Year
  Sex: Female

DRUGS (3)
  1. ULORIC [Suspect]
     Active Substance: FEBUXOSTAT
     Indication: GOUT
     Route: 048
     Dates: start: 20101024, end: 20101216
  2. INDOMETHACIN (INDOMETACIN) [Concomitant]
     Active Substance: INDOMETHACIN
  3. COLCHICINE (COLCHICINE) [Suspect]
     Active Substance: COLCHICINE
     Indication: GOUT
     Route: 048
     Dates: start: 20101024, end: 201010

REACTIONS (2)
  - Gout [None]
  - Diarrhoea [None]

NARRATIVE: CASE EVENT DATE: 2010
